FAERS Safety Report 15188575 (Version 1)
Quarter: 2018Q3

REPORT INFORMATION
  Report Type: Report from Study
  Country: US (occurrence: US)
  Receive Date: 20180724
  Receipt Date: 20180724
  Transmission Date: 20181010
  Serious: Yes (Death, Other)
  Sender: FDA-Public Use
  Company Number: US-GILEAD-2018-0351396

PATIENT
  Age: 63 Year
  Sex: Female

DRUGS (11)
  1. ONDANSETRON [Concomitant]
     Active Substance: ONDANSETRON
  2. AMLODIPINE [Concomitant]
     Active Substance: AMLODIPINE BESYLATE
  3. LEDIPASVIR/SOFOSBUVIR [Suspect]
     Active Substance: LEDIPASVIR\SOFOSBUVIR
     Indication: HEPATOCELLULAR CARCINOMA
     Dosage: 1 DF, UNK
     Route: 065
     Dates: start: 20171230, end: 201803
  4. INDERAL [Concomitant]
     Active Substance: PROPRANOLOL HYDROCHLORIDE
  5. SPIRONOLACTONE. [Concomitant]
     Active Substance: SPIRONOLACTONE
  6. PROTONIX                           /00661201/ [Concomitant]
     Active Substance: OMEPRAZOLE
  7. TYLENOL [Concomitant]
     Active Substance: ACETAMINOPHEN
  8. MORPHINE SULFATE. [Concomitant]
     Active Substance: MORPHINE SULFATE
  9. TRAMADOL. [Concomitant]
     Active Substance: TRAMADOL
  10. METFORMIN [Concomitant]
     Active Substance: METFORMIN HYDROCHLORIDE
  11. FUROSEMIDE. [Concomitant]
     Active Substance: FUROSEMIDE

REACTIONS (2)
  - Death [Fatal]
  - Off label use [Recovered/Resolved]

NARRATIVE: CASE EVENT DATE: 20171230
